FAERS Safety Report 7302912-8 (Version None)
Quarter: 2011Q1

REPORT INFORMATION
  Report Type: 
  Country: None (occurrence: None)
  Receive Date: 20110218
  Receipt Date: 20110217
  Transmission Date: 20110831
  Serious: Yes (Hospitalization)
  Sender: FDA-Public Use
  Company Number: US-GILEAD-2010-0033226

PATIENT
  Sex: Female

DRUGS (18)
  1. CALCITRIOL [Concomitant]
  2. REVATIO [Concomitant]
     Indication: PULMONARY HYPERTENSION
  3. FERROUS SULFATE TAB [Concomitant]
     Indication: ANAEMIA
  4. CATAPRESS PATCH [Concomitant]
  5. ASPIRIN [Concomitant]
     Indication: CORONARY ARTERY DISEASE
  6. COUMADIN [Concomitant]
     Indication: CORONARY ARTERY DISEASE
  7. LANTUS [Concomitant]
  8. HYDRALAZINE [Concomitant]
     Indication: CARDIAC FAILURE CONGESTIVE
  9. BUMEX [Concomitant]
     Indication: CARDIAC FAILURE CONGESTIVE
  10. HYDROCHLOROTHIAZIDE [Concomitant]
     Indication: CARDIAC FAILURE CONGESTIVE
  11. AMBIEN [Concomitant]
  12. EXFORGE [Concomitant]
  13. PROCRIT [Concomitant]
  14. GABAPENTIN [Concomitant]
  15. OMEPRAZOLE [Concomitant]
  16. LETAIRIS [Suspect]
     Indication: PULMONARY ARTERIAL HYPERTENSION
     Route: 048
     Dates: start: 20101020
  17. TRICOR [Concomitant]
     Indication: CORONARY ARTERY DISEASE
  18. RENAGEL [Concomitant]

REACTIONS (4)
  - DYSPNOEA [None]
  - FATIGUE [None]
  - ASTHENIA [None]
  - ANAEMIA [None]
